FAERS Safety Report 7648280-3 (Version None)
Quarter: 2011Q3

REPORT INFORMATION
  Report Type: 
  Country: None (occurrence: None)
  Receive Date: 20110801
  Receipt Date: 20110722
  Transmission Date: 20111222
  Serious: Yes (Other)
  Sender: FDA-Public Use
  Company Number: US-ASTRAZENECA-2011SE44037

PATIENT
  Age: 78 Year
  Sex: Female

DRUGS (13)
  1. SYNTHROID [Concomitant]
     Indication: THYROID DISORDER
  2. FISH OIL [Concomitant]
  3. KLONOPIN [Concomitant]
     Indication: RESTLESS LEGS SYNDROME
  4. ASPIRIN [Concomitant]
     Indication: CARDIAC DISORDER
  5. CRESTOR [Suspect]
     Route: 048
  6. CALCIUM ACETATE [Concomitant]
  7. PLAVIX [Concomitant]
     Indication: CARDIAC DISORDER
  8. ADOPT [Concomitant]
     Indication: EYE DISORDER
  9. CRESTOR [Suspect]
     Route: 048
  10. CRESTOR [Suspect]
     Indication: BLOOD CHOLESTEROL ABNORMAL
     Route: 048
  11. XALATAN [Concomitant]
     Indication: EYE DISORDER
  12. PEPCID [Concomitant]
  13. OSTEOFLEX [Concomitant]
     Indication: ARTHRITIS

REACTIONS (4)
  - ABDOMINAL DISCOMFORT [None]
  - MYOCARDIAL INFARCTION [None]
  - PAIN IN EXTREMITY [None]
  - MUSCLE SPASMS [None]
